FAERS Safety Report 23571587 (Version 2)
Quarter: 2024Q1

REPORT INFORMATION
  Report Type: Spontaneous
  Country: ES (occurrence: None)
  Receive Date: 20240227
  Receipt Date: 20240308
  Transmission Date: 20240410
  Serious: Yes (Life-Threatening, Hospitalization, Other)
  Sender: FDA-Public Use
  Company Number: 2024A046159

PATIENT
  Age: 11 Year
  Sex: Male
  Weight: 62 kg

DRUGS (1)
  1. SELUMETINIB [Suspect]
     Active Substance: SELUMETINIB
     Indication: Optic glioma
     Route: 048
     Dates: start: 202007, end: 202401

REACTIONS (6)
  - Multiple organ dysfunction syndrome [Recovering/Resolving]
  - Respiratory failure [Unknown]
  - Pneumonia [Not Recovered/Not Resolved]
  - Cardio-respiratory arrest [Unknown]
  - Gastrointestinal haemorrhage [Unknown]
  - Off label use [Unknown]

NARRATIVE: CASE EVENT DATE: 20240101
